FAERS Safety Report 8887867 (Version 1)
Quarter: 2012Q4

REPORT INFORMATION
  Report Type: Spontaneous
  Country: IN (occurrence: None)
  Receive Date: 20121031
  Receipt Date: 20121031
  Transmission Date: 20130627
  Serious: Yes (Other)
  Sender: FDA-Public Use
  Company Number: 2012MA012425

PATIENT
  Age: 46 Year
  Sex: Female

DRUGS (1)
  1. LIDOCAINE [Suspect]
     Indication: SPINAL ANESTHESIA
     Dosage: ION

REACTIONS (1)
  - Neuropathic arthropathy [None]
